FAERS Safety Report 17586717 (Version 1)
Quarter: 2020Q1

REPORT INFORMATION
  Report Type: Spontaneous
  Country: US (occurrence: US)
  Receive Date: 20200326
  Receipt Date: 20200326
  Transmission Date: 20200409
  Serious: Yes (Hospitalization)
  Sender: FDA-Public Use
  Company Number: None

PATIENT
  Age: 58 Year
  Sex: Male
  Weight: 56.25 kg

DRUGS (1)
  1. VENLAFAXINE HCL ER  37.5MG. [Suspect]
     Active Substance: VENLAFAXINE HYDROCHLORIDE
     Indication: DEPRESSION
     Route: 048
     Dates: start: 20191203, end: 20200303

REACTIONS (1)
  - Fall [None]

NARRATIVE: CASE EVENT DATE: 20200302
